FAERS Safety Report 8238350-3 (Version None)
Quarter: 2012Q1

REPORT INFORMATION
  Report Type: 
  Country: None (occurrence: None)
  Receive Date: 20120327
  Receipt Date: 20120327
  Transmission Date: 20120608
  Serious: Yes (Other)
  Sender: FDA-Public Use
  Company Number: US-BAYER-2012-029626

PATIENT
  Age: 52 Year
  Sex: Male

DRUGS (3)
  1. BETASERON [Suspect]
     Dosage: 8 MIU, QOD
     Route: 058
     Dates: start: 20120312
  2. BETASERON [Suspect]
     Dosage: UNK
     Route: 058
     Dates: start: 20090218, end: 20111219
  3. BETASERON [Suspect]
     Indication: SECONDARY PROGRESSIVE MULTIPLE SCLEROSIS
     Dosage: UNK
     Route: 058
     Dates: start: 19940125, end: 20090110

REACTIONS (4)
  - PYREXIA [None]
  - INJECTION SITE HAEMATOMA [None]
  - MOBILITY DECREASED [None]
  - INJECTION SITE MASS [None]
